FAERS Safety Report 8103649-8 (Version None)
Quarter: 2012Q1

REPORT INFORMATION
  Report Type: 
  Country: None (occurrence: None)
  Receive Date: 20120201
  Receipt Date: 20120127
  Transmission Date: 20120608
  Serious: Yes (Death, Hospitalization)
  Sender: FDA-Public Use
  Company Number: UY-ROXANE LABORATORIES, INC.-2012-RO-00561RO

PATIENT
  Age: 75 Year
  Sex: Female

DRUGS (9)
  1. BISACODYL [Suspect]
     Indication: CONSTIPATION
     Dosage: 10 ML
  2. METOCLOPRAMIDE [Suspect]
     Dosage: 60 MG
     Route: 042
  3. LACTULOSE SOLUTION USP, 10 G/15 ML [Suspect]
     Indication: CONSTIPATION
     Dosage: 40 ML
     Route: 048
  4. MORPHINE [Suspect]
     Dosage: 90 MG
     Route: 042
  5. MORPHINE [Suspect]
     Indication: METASTATIC PAIN
     Dosage: 280 MG
     Route: 048
  6. DEXAMETHASONE [Suspect]
     Indication: METASTATIC PAIN
     Dosage: 16 MG
     Route: 048
  7. NEOSTIGMINE [Suspect]
     Indication: CONSTIPATION
     Route: 058
  8. METHADONE HCL [Suspect]
     Indication: METASTATIC PAIN
     Dosage: 70 MG
     Route: 048
  9. ACETAMINOPHEN [Suspect]
     Indication: METASTATIC PAIN
     Dosage: 975 MG
     Route: 048

REACTIONS (6)
  - ELECTROLYTE IMBALANCE [None]
  - BLOOD CREATININE INCREASED [None]
  - DEATH [None]
  - ABDOMINAL PAIN [None]
  - CONSTIPATION [None]
  - DEHYDRATION [None]
